FAERS Safety Report 9845996 (Version 1)
Quarter: 2013Q4

REPORT INFORMATION
  Report Type: Spontaneous
  Country: US (occurrence: None)
  Receive Date: 20131219
  Receipt Date: 20131219
  Transmission Date: 20140711
  Serious: Yes (Other)
  Sender: FDA-Public Use
  Company Number: 163-20785-13034819

PATIENT
  Age: 74 Year
  Sex: Male

DRUGS (2)
  1. THALOMID (THALIDOMIDE) (50 MILLIGRAM, CAPSULES) [Suspect]
     Indication: PLASMA CELL MYELOMA
     Route: 048
     Dates: start: 200403, end: 2004
  2. DEXAMETHASONE [Concomitant]

REACTIONS (1)
  - Pulmonary embolism [None]
